FAERS Safety Report 17581428 (Version 3)
Quarter: 2020Q3

REPORT INFORMATION
  Report Type: Spontaneous
  Country: US (occurrence: US)
  Receive Date: 20200325
  Receipt Date: 20200910
  Transmission Date: 20201102
  Serious: Yes (Other)
  Sender: FDA-Public Use
  Company Number: US-GILEAD-2020-0456177

PATIENT
  Age: 41 Year
  Sex: Female
  Weight: 97.96 kg

DRUGS (47)
  1. ATROPINE. [Concomitant]
     Active Substance: ATROPINE
  2. OMEPRAZOLE. [Concomitant]
     Active Substance: OMEPRAZOLE
  3. TRAMADOL. [Concomitant]
     Active Substance: TRAMADOL
  4. ATENOLOL. [Concomitant]
     Active Substance: ATENOLOL
  5. AZITHROMYCIN ANHYDROUS. [Concomitant]
     Active Substance: AZITHROMYCIN ANHYDROUS
  6. BUDEPRION [Concomitant]
     Active Substance: BUPROPION HYDROCHLORIDE
  7. MECLIZINE [MECLOZINE HYDROCHLORIDE] [Concomitant]
     Active Substance: MECLIZINE HYDROCHLORIDE
  8. NITROFURANTOIN. [Concomitant]
     Active Substance: NITROFURANTOIN
  9. CETIRIZINE [Concomitant]
     Active Substance: CETIRIZINE HYDROCHLORIDE
  10. HYDROMORPHONE [Concomitant]
     Active Substance: HYDROMORPHONE
  11. IBUPROFEN. [Concomitant]
     Active Substance: IBUPROFEN
  12. METHIMAZOLE. [Concomitant]
     Active Substance: METHIMAZOLE
  13. METHYLPREDNISOLONE. [Concomitant]
     Active Substance: METHYLPREDNISOLONE
  14. PYLERA [Concomitant]
     Active Substance: BISMUTH SUBCITRATE POTASSIUM\METRONIDAZOLE\TETRACYCLINE HYDROCHLORIDE
  15. VENLAFAXIN [Concomitant]
     Active Substance: VENLAFAXINE HYDROCHLORIDE
  16. NORVIR [Concomitant]
     Active Substance: RITONAVIR
  17. REYATAZ [Concomitant]
     Active Substance: ATAZANAVIR SULFATE
  18. CLOTRIMAZOLE. [Concomitant]
     Active Substance: CLOTRIMAZOLE
  19. FLUCONAZOLE. [Concomitant]
     Active Substance: FLUCONAZOLE
  20. LEVOFLOXACIN. [Concomitant]
     Active Substance: LEVOFLOXACIN
  21. LEVOTHYROXINE. [Concomitant]
     Active Substance: LEVOTHYROXINE
  22. VALACYCLOVIR [Concomitant]
     Active Substance: VALACYCLOVIR HYDROCHLORIDE
  23. ACYCLOVIR [ACICLOVIR] [Concomitant]
     Active Substance: ACYCLOVIR
  24. AMOXICILLIN. [Concomitant]
     Active Substance: AMOXICILLIN
  25. CALCIUM + VITAMIN D [CALCIUM CARBONATE;COLECALCIFEROL] [Concomitant]
     Active Substance: CALCIUM CARBONATE\CHOLECALCIFEROL
  26. LOPERAMIDE [Concomitant]
     Active Substance: LOPERAMIDE
  27. METRONIDAZOLE. [Concomitant]
     Active Substance: METRONIDAZOLE
  28. PREDNISONE. [Concomitant]
     Active Substance: PREDNISONE
  29. TRUVADA [Suspect]
     Active Substance: EMTRICITABINE\TENOFOVIR DISOPROXIL FUMARATE
     Indication: HIV INFECTION
     Dosage: UNK
     Route: 048
     Dates: start: 2009, end: 201708
  30. CLINDAMYCIN. [Concomitant]
     Active Substance: CLINDAMYCIN
  31. HYOSCYAMINE. [Concomitant]
     Active Substance: HYOSCYAMINE
  32. MELOXICAM. [Concomitant]
     Active Substance: MELOXICAM
  33. GENVOYA [Concomitant]
     Active Substance: COBICISTAT\ELVITEGRAVIR\EMTRICITABINE\TENOFOVIR ALAFENAMIDE FUMARATE
  34. ACETAMINOPHEN. [Concomitant]
     Active Substance: ACETAMINOPHEN
  35. CIPROFLOXACIN. [Concomitant]
     Active Substance: CIPROFLOXACIN
  36. CLARITHROMYCIN. [Concomitant]
     Active Substance: CLARITHROMYCIN
  37. ESTRADIOL. [Concomitant]
     Active Substance: ESTRADIOL
  38. FAMOTIDINE. [Concomitant]
     Active Substance: FAMOTIDINE
  39. HYDROCODONE [Concomitant]
     Active Substance: HYDROCODONE
  40. OXYBUTYNIN. [Concomitant]
     Active Substance: OXYBUTYNIN CHLORIDE
  41. PHENAZOPYRIDINE. [Concomitant]
     Active Substance: PHENAZOPYRIDINE
  42. DOXYCYCLINE. [Concomitant]
     Active Substance: DOXYCYCLINE
  43. NAPROXEN. [Concomitant]
     Active Substance: NAPROXEN
  44. ONDANSETRON [Concomitant]
     Active Substance: ONDANSETRON
  45. PROPRANOLOL [Concomitant]
     Active Substance: PROPRANOLOL HYDROCHLORIDE
  46. RANITIDINE. [Concomitant]
     Active Substance: RANITIDINE
  47. SERTRALINE [Concomitant]
     Active Substance: SERTRALINE HYDROCHLORIDE

REACTIONS (9)
  - Pain [Not Recovered/Not Resolved]
  - Anhedonia [Not Recovered/Not Resolved]
  - Emotional distress [Not Recovered/Not Resolved]
  - Fracture [Not Recovered/Not Resolved]
  - Bone density decreased [Unknown]
  - Anxiety [Not Recovered/Not Resolved]
  - Depression [Not Recovered/Not Resolved]
  - Osteopenia [Unknown]
  - Economic problem [Not Recovered/Not Resolved]

NARRATIVE: CASE EVENT DATE: 2010
